FAERS Safety Report 14260713 (Version 2)
Quarter: 2017Q4

REPORT INFORMATION
  Report Type: Spontaneous
  Country: US (occurrence: US)
  Receive Date: 20171207
  Receipt Date: 20171227
  Transmission Date: 20180321
  Serious: Yes (Other)
  Sender: FDA-Public Use
  Company Number: US-BEH-2017085624

PATIENT
  Sex: Female
  Weight: 58.96 kg

DRUGS (28)
  1. RANITIDINE. [Concomitant]
     Active Substance: RANITIDINE
  2. PLAVIX [Concomitant]
     Active Substance: CLOPIDOGREL BISULFATE
  3. SEROQUEL [Concomitant]
     Active Substance: QUETIAPINE FUMARATE
  4. CLONAZEPAM. [Concomitant]
     Active Substance: CLONAZEPAM
  5. ALBUTEROL                          /00139501/ [Concomitant]
     Active Substance: ALBUTEROL
  6. CYMBALTA [Concomitant]
     Active Substance: DULOXETINE HYDROCHLORIDE
  7. EPINEPHRINE. [Concomitant]
     Active Substance: EPINEPHRINE
  8. CEPHALEXIN                         /00145501/ [Concomitant]
     Active Substance: CEPHALEXIN
  9. HIZENTRA [Suspect]
     Active Substance: HUMAN IMMUNOGLOBULIN G
     Indication: IMMUNODEFICIENCY COMMON VARIABLE
     Dosage: 10 G, UNK
     Route: 058
     Dates: start: 20110310
  10. DIPHENHYDRAMINE. [Concomitant]
     Active Substance: DIPHENHYDRAMINE
  11. LYRICA [Concomitant]
     Active Substance: PREGABALIN
  12. DEXILANT [Concomitant]
     Active Substance: DEXLANSOPRAZOLE
  13. ACIPHEX [Concomitant]
     Active Substance: RABEPRAZOLE SODIUM
  14. MULTIVITAMIN                       /00097801/ [Concomitant]
     Active Substance: VITAMINS
  15. HIZENTRA [Suspect]
     Active Substance: HUMAN IMMUNOGLOBULIN G
     Dosage: UNK
     Route: 058
  16. AUGMENTIN [Concomitant]
     Active Substance: AMOXICILLIN\CLAVULANATE POTASSIUM
  17. DICYCLOMINE                        /00068601/ [Concomitant]
     Active Substance: DICYCLOMINE HYDROCHLORIDE
  18. CYTOTEC [Concomitant]
     Active Substance: MISOPROSTOL
  19. ZYPREXA [Concomitant]
     Active Substance: OLANZAPINE
  20. ADVAIR HFA [Concomitant]
     Active Substance: FLUTICASONE PROPIONATE\SALMETEROL XINAFOATE
  21. BUSPAR [Concomitant]
     Active Substance: BUSPIRONE HYDROCHLORIDE
  22. ZYRTEC [Concomitant]
     Active Substance: CETIRIZINE HYDROCHLORIDE
  23. LINZESS [Concomitant]
     Active Substance: LINACLOTIDE
  24. MUCINEX [Concomitant]
     Active Substance: GUAIFENESIN
  25. AMOXICILLIN. [Concomitant]
     Active Substance: AMOXICILLIN
  26. SPIRIVA [Concomitant]
     Active Substance: TIOTROPIUM BROMIDE MONOHYDRATE
  27. LMX                                /00033401/ [Concomitant]
  28. LAMICTAL [Concomitant]
     Active Substance: LAMOTRIGINE

REACTIONS (5)
  - Pyrexia [Unknown]
  - Respiratory tract infection fungal [Unknown]
  - Secretion discharge [Unknown]
  - Bronchitis [Unknown]
  - Therapeutic response decreased [Unknown]
